FAERS Safety Report 9127150 (Version 1)
Quarter: 2013Q1

REPORT INFORMATION
  Report Type: Spontaneous
  Country: US (occurrence: US)
  Receive Date: 20130122
  Receipt Date: 20130122
  Transmission Date: 20140127
  Serious: Yes (Other)
  Sender: FDA-Public Use
  Company Number: US-RB-048771-13

PATIENT
  Sex: Female

DRUGS (3)
  1. SUBOXONE FILM [Suspect]
     Indication: DRUG DEPENDENCE
     Dosage: SUBOXONE FILM
     Route: 060
  2. BIRTH CONTROL PILLS NOS [Suspect]
     Indication: CONTRACEPTION
     Dosage: DOSING DETAILS UNKNOWN
     Route: 065
     Dates: end: 2009
  3. NICOTINE [Suspect]
     Indication: PRODUCT USED FOR UNKNOWN INDICATION
     Dosage: 4 CIGARETTES PER DAY
     Route: 055
     Dates: start: 2004

REACTIONS (3)
  - Abortion spontaneous [Recovered/Resolved]
  - Exposure during pregnancy [Recovered/Resolved]
  - Pregnancy on oral contraceptive [None]
